FAERS Safety Report 16788158 (Version 3)
Quarter: 2019Q4

REPORT INFORMATION
  Report Type: Spontaneous
  Country: PT (occurrence: PT)
  Receive Date: 20190909
  Receipt Date: 20191005
  Transmission Date: 20200122
  Serious: Yes (Other)
  Sender: FDA-Public Use
  Company Number: PT-AUROBINDO-AUR-APL-2019-058897

PATIENT
  Age: 48 Year
  Sex: Female

DRUGS (25)
  1. ORLISTAT. [Suspect]
     Active Substance: ORLISTAT
     Indication: WEIGHT DECREASED
     Dosage: UNK,COMPOUNDED PREPARATION
     Route: 065
  2. CHROMIUM PICOLINATE [Suspect]
     Active Substance: CHROMIUM PICOLINATE
     Indication: WEIGHT CONTROL
  3. FUROSEMIDE. [Suspect]
     Active Substance: FUROSEMIDE
     Indication: WEIGHT DECREASED
     Dosage: UNK COMPOUNDED PREPARATION
     Route: 065
  4. FUROSEMIDE. [Suspect]
     Active Substance: FUROSEMIDE
     Indication: WEIGHT CONTROL
  5. ORLISTAT. [Suspect]
     Active Substance: ORLISTAT
     Indication: WEIGHT CONTROL
  6. CENTELLA ASIATICA [Suspect]
     Active Substance: CENTELLA ASIATICA WHOLE
     Indication: WEIGHT DECREASED
     Dosage: UNK, COMPOUNDED PREPARATION
     Route: 065
  7. METFORMIN [Suspect]
     Active Substance: METFORMIN HYDROCHLORIDE
     Indication: WEIGHT CONTROL
     Dosage: UNK, COMPOUNDED PREPARATION
     Route: 065
  8. METFORMIN [Suspect]
     Active Substance: METFORMIN HYDROCHLORIDE
     Indication: WEIGHT DECREASED
  9. TOPIRAMATE. [Suspect]
     Active Substance: TOPIRAMATE
     Indication: WEIGHT DECREASED
     Dosage: UNK, COMPOUNDED PREPARATION
     Route: 065
  10. TOPIRAMATE. [Suspect]
     Active Substance: TOPIRAMATE
     Indication: WEIGHT CONTROL
  11. BUPROPION. [Suspect]
     Active Substance: BUPROPION
     Indication: WEIGHT CONTROL
  12. ETHINYLESTRADIOL+GESTODEN [Interacting]
     Active Substance: ETHINYL ESTRADIOL\GESTODENE
     Indication: ORAL CONTRACEPTION
     Dosage: UNK 0.030MG/0.075MG,RE-INTRODUCED 5 MONTHS BEFORE
     Route: 048
  13. SENNOSIDE A+B [Suspect]
     Active Substance: SENNOSIDES A AND B
     Indication: WEIGHT CONTROL
     Dosage: UNK
     Route: 065
  14. PHENOLPHTHALEIN [Suspect]
     Active Substance: PHENOLPHTHALEIN
     Indication: WEIGHT CONTROL
  15. CENTELLA ASIATICA [Suspect]
     Active Substance: CENTELLA ASIATICA WHOLE
     Indication: WEIGHT CONTROL
  16. CHLORDIAZEPOXIDE. [Suspect]
     Active Substance: CHLORDIAZEPOXIDE
     Indication: WEIGHT CONTROL
  17. FRANGULA PURSHIANA [Suspect]
     Active Substance: HERBALS
     Indication: WEIGHT DECREASED
     Dosage: UNK, COMPOUNDED PREPARATION
     Route: 065
  18. CHLORDIAZEPOXIDE. [Suspect]
     Active Substance: CHLORDIAZEPOXIDE
     Indication: WEIGHT DECREASED
     Dosage: UNK, COMPOUNDED PREPARATION
     Route: 065
  19. CASSIA ALEXANDRINA [Suspect]
     Active Substance: SENNA LEAF
     Indication: WEIGHT CONTROL
  20. BUPROPION. [Suspect]
     Active Substance: BUPROPION
     Indication: WEIGHT DECREASED
     Dosage: UNK, COMPOUNDED PREPARATION
     Route: 065
  21. FRANGULA PURSHIANA [Suspect]
     Active Substance: HERBALS
     Indication: WEIGHT CONTROL
  22. PHENOLPHTHALEIN [Suspect]
     Active Substance: PHENOLPHTHALEIN
     Indication: WEIGHT DECREASED
     Dosage: UNK, COMPOUNDED PREPARATION
     Route: 065
  23. CASSIA ALEXANDRINA [Suspect]
     Active Substance: SENNA LEAF
     Indication: WEIGHT DECREASED
     Dosage: UNK, COMPOUNDED PREPARATION
     Route: 065
  24. CHROMIUM PICOLINATE [Suspect]
     Active Substance: CHROMIUM PICOLINATE
     Indication: WEIGHT DECREASED
     Dosage: UNK, COMPOUNDED PREPARATION
     Route: 065
  25. ETHINYLESTRADIOL+GESTODEN [Interacting]
     Active Substance: ETHINYL ESTRADIOL\GESTODENE
     Indication: WEIGHT CONTROL

REACTIONS (5)
  - Intentional product misuse [Unknown]
  - Product use in unapproved indication [Unknown]
  - Off label use [Unknown]
  - Cerebral venous thrombosis [Unknown]
  - Drug interaction [Unknown]
